FAERS Safety Report 9217031 (Version 3)
Quarter: 2013Q2

REPORT INFORMATION
  Report Type: Spontaneous
  Country: JP (occurrence: JP)
  Receive Date: 20130408
  Receipt Date: 20130503
  Transmission Date: 20140414
  Serious: Yes (Death, Life-Threatening, Hospitalization)
  Sender: FDA-Public Use
  Company Number: JP-ELI_LILLY_AND_COMPANY-JP201304000768

PATIENT
  Age: 77 Year
  Sex: Male
  Weight: 56.7 kg

DRUGS (4)
  1. ALIMTA [Suspect]
     Indication: LUNG ADENOCARCINOMA RECURRENT
     Dosage: 500 MG/M2, UNK
     Route: 042
     Dates: start: 20121101, end: 20130201
  2. CARBOPLATIN [Concomitant]
     Indication: LUNG ADENOCARCINOMA RECURRENT
     Dosage: UNK
     Route: 042
     Dates: start: 20121101, end: 20130111
  3. VITAMIN B12 [Concomitant]
     Dosage: 1 MG, UNK
     Route: 030
     Dates: start: 20121012
  4. PANVITAN [Concomitant]
     Dosage: 1 G, UNK
     Route: 048
     Dates: start: 20121012, end: 20130301

REACTIONS (8)
  - Pneumonia [Fatal]
  - Acute respiratory distress syndrome [Fatal]
  - Disseminated intravascular coagulation [Fatal]
  - Multi-organ failure [Fatal]
  - Pneumonitis [Fatal]
  - Thrombocytopenia [Not Recovered/Not Resolved]
  - Respiratory failure [Not Recovered/Not Resolved]
  - Sepsis [Recovering/Resolving]
